FAERS Safety Report 16211135 (Version 1)
Quarter: 2019Q2

REPORT INFORMATION
  Report Type: Spontaneous
  Country: US (occurrence: US)
  Receive Date: 20190417
  Receipt Date: 20190417
  Transmission Date: 20190711
  Serious: Yes (Other)
  Sender: FDA-Public Use
  Company Number: None

PATIENT
  Age: 66 Year
  Sex: Female
  Weight: 96.75 kg

DRUGS (16)
  1. BYDUREON [Suspect]
     Active Substance: EXENATIDE
     Indication: BLOOD GLUCOSE INCREASED
     Dosage: 1 INJECTION(S);OTHER FREQUENCY:WEEKLY;OTHER ROUTE:SUBCUTANEOUSLY STOMACH AREA?
     Route: 058
     Dates: start: 20190220
  2. ZINC. [Concomitant]
     Active Substance: ZINC
  3. VITAMIN D3 [Concomitant]
     Active Substance: CHOLECALCIFEROL
  4. PROBIOTIC [Concomitant]
     Active Substance: PROBIOTICS NOS
  5. LUTEIN [Concomitant]
     Active Substance: LUTEIN
  6. GLIMEPIRIDE. [Concomitant]
     Active Substance: GLIMEPIRIDE
  7. LIOTHYRONINE [Concomitant]
     Active Substance: LIOTHYRONINE
  8. IRON [Concomitant]
     Active Substance: IRON
  9. ATORVASTIN [Concomitant]
     Active Substance: ATORVASTATIN
  10. LOSARTAN. [Concomitant]
     Active Substance: LOSARTAN
  11. VITAMIN B12 [Concomitant]
     Active Substance: CYANOCOBALAMIN
  12. ZEAXANTHIN [Concomitant]
     Active Substance: ZEAXANTHIN
  13. ALLEREST [Concomitant]
     Active Substance: CHLORPHENIRAMINE MALEATE\PHENYLEPHRINE HYDROCHLORIDE
  14. L-THYROXINE [Concomitant]
     Active Substance: LEVOTHYROXINE
  15. CALCIUM [Concomitant]
     Active Substance: CALCIUM
  16. COENZYME Q10 [Concomitant]
     Active Substance: UBIDECARENONE

REACTIONS (2)
  - Injection site mass [None]
  - Insurance issue [None]

NARRATIVE: CASE EVENT DATE: 20190302
